FAERS Safety Report 23692830 (Version 1)
Quarter: 2024Q2

REPORT INFORMATION
  Report Type: Spontaneous
  Country: SK (occurrence: SK)
  Receive Date: 20240401
  Receipt Date: 20240401
  Transmission Date: 20240716
  Serious: Yes (Hospitalization, Other)
  Sender: FDA-Public Use
  Company Number: SK-ABBVIE-5686527

PATIENT
  Age: 69 Year
  Sex: Female

DRUGS (2)
  1. METHYLPREDNISOLONE [Suspect]
     Active Substance: METHYLPREDNISOLONE
  2. ADALIMUMAB [Suspect]
     Active Substance: ADALIMUMAB\ISOPROPYL ALCOHOL
     Indication: Rheumatoid arthritis
     Dosage: 40 MG, INTERVAL 14 DAYS
     Route: 058

REACTIONS (11)
  - Anaemia [Unknown]
  - Respiratory failure [Unknown]
  - Bronchitis chronic [Unknown]
  - Pneumonia [Recovered/Resolved]
  - Pneumonia [Unknown]
  - Disease recurrence [Unknown]
  - Rheumatoid arthritis-associated interstitial lung disease [Unknown]
  - Pulmonary interstitial emphysema syndrome [Unknown]
  - Interstitial lung disease [Unknown]
  - Humoral immune defect [Unknown]
  - Chronic obstructive pulmonary disease [Unknown]

NARRATIVE: CASE EVENT DATE: 20220101
